FAERS Safety Report 6473511-5 (Version None)
Quarter: 2009Q4

REPORT INFORMATION
  Report Type: 
  Country: None (occurrence: None)
  Receive Date: 20091204
  Receipt Date: 20090416
  Transmission Date: 20100525
  Serious: Yes (Hospitalization, Other)
  Sender: FDA-Public Use
  Company Number: US-ELI_LILLY_AND_COMPANY-US200812002398

PATIENT
  Sex: Female
  Weight: 112.47 kg

DRUGS (13)
  1. BYETTA [Suspect]
     Dosage: UNK, UNKNOWN
     Route: 065
     Dates: start: 20061202, end: 20070101
  2. LANTUS [Concomitant]
     Dosage: 30 U, EACH MORNING
     Route: 065
     Dates: end: 20070101
  3. LANTUS [Concomitant]
     Dosage: 50 U, EACH EVENING
     Dates: end: 20070101
  4. LIPITOR [Concomitant]
     Dosage: 20 MG, EACH EVENING
     Route: 065
     Dates: end: 20071201
  5. GEMFIBROZIL [Concomitant]
     Route: 065
  6. LISINOPRIL [Concomitant]
     Dosage: 10 MG, DAILY (1/D)
     Route: 065
  7. GABAPENTIN [Concomitant]
     Dosage: 600 UNK, 3/D
     Route: 048
  8. ASPIRIN [Concomitant]
     Dosage: 81 MG, DAILY (1/D)
     Route: 065
  9. LASIX [Concomitant]
     Dosage: 40 MG, DAILY (1/D)
     Route: 065
  10. METOPROLOL [Concomitant]
     Dosage: 100 MG, DAILY (1/D)
     Route: 065
  11. HUMALOG [Concomitant]
     Dosage: UNK, AS NEEDED
     Route: 065
  12. ANTIBIOTICS [Concomitant]
     Indication: STAPHYLOCOCCAL BACTERAEMIA
     Dosage: UNK, UNKNOWN
     Route: 065
  13. TYLENOL /USA/ [Concomitant]

REACTIONS (9)
  - ABDOMINAL PAIN [None]
  - CHILLS [None]
  - COUGH [None]
  - ELECTROLYTE IMBALANCE [None]
  - HYPERGLYCAEMIA [None]
  - PAIN [None]
  - PANCREATITIS [None]
  - PANCREATITIS RELAPSING [None]
  - STAPHYLOCOCCAL BACTERAEMIA [None]
